FAERS Safety Report 16062081 (Version 2)
Quarter: 2019Q2

REPORT INFORMATION
  Report Type: Spontaneous
  Country: US (occurrence: US)
  Receive Date: 20190312
  Receipt Date: 20190423
  Transmission Date: 20190711
  Serious: No
  Sender: FDA-Public Use
  Company Number: US-BIOGEN-2019BI00701084

PATIENT
  Age: 56 Year
  Sex: Female

DRUGS (2)
  1. TECFIDERA [Suspect]
     Active Substance: DIMETHYL FUMARATE
     Indication: RELAPSING-REMITTING MULTIPLE SCLEROSIS
     Route: 050
     Dates: start: 20180508
  2. TECFIDERA [Suspect]
     Active Substance: DIMETHYL FUMARATE
     Route: 048

REACTIONS (6)
  - Seasonal allergy [Not Recovered/Not Resolved]
  - Memory impairment [Not Recovered/Not Resolved]
  - Multiple allergies [Not Recovered/Not Resolved]
  - Product dose omission [Recovered/Resolved]
  - Constipation [Not Recovered/Not Resolved]
  - Anxiety [Not Recovered/Not Resolved]

NARRATIVE: CASE EVENT DATE: 201805
